FAERS Safety Report 7758138-7 (Version None)
Quarter: 2011Q3

REPORT INFORMATION
  Report Type: 
  Country: None (occurrence: None)
  Receive Date: 20110919
  Receipt Date: 20091028
  Transmission Date: 20111222
  Serious: No
  Sender: FDA-Public Use
  Company Number: 2009BI035113

PATIENT
  Sex: Female

DRUGS (1)
  1. TYSABRI [Suspect]
     Indication: MULTIPLE SCLEROSIS
     Route: 042
     Dates: start: 20091013

REACTIONS (7)
  - MUSCLE SPASMS [None]
  - PRURITUS [None]
  - MIGRAINE [None]
  - HEADACHE [None]
  - NAUSEA [None]
  - EAR PAIN [None]
  - HYPERHIDROSIS [None]
